FAERS Safety Report 8504037-2 (Version None)
Quarter: 2012Q3

REPORT INFORMATION
  Report Type: 
  Country: None (occurrence: None)
  Receive Date: 20120711
  Receipt Date: 20120629
  Transmission Date: 20120928
  Serious: Yes (Other)
  Sender: FDA-Public Use
  Company Number: JP-ELI_LILLY_AND_COMPANY-JP201108004709

PATIENT
  Sex: Female
  Weight: 42 kg

DRUGS (5)
  1. HOKUNALIN [Concomitant]
     Dosage: UNK
     Route: 062
  2. MUCOSOLVAN [Concomitant]
     Dosage: UNK
     Route: 048
  3. FOLIC ACID [Concomitant]
  4. ALIMTA [Suspect]
     Indication: LUNG ADENOCARCINOMA RECURRENT
     Dosage: 651 MG, UNK
     Route: 042
     Dates: start: 20110810, end: 20110810
  5. VITAMIN B-12 [Concomitant]

REACTIONS (1)
  - ANAPHYLACTIC SHOCK [None]
